FAERS Safety Report 10378416 (Version 1)
Quarter: 2014Q3

REPORT INFORMATION
  Report Type: Spontaneous
  Country: US (occurrence: None)
  Receive Date: 20140811
  Receipt Date: 20140811
  Transmission Date: 20150326
  Serious: Yes (Other)
  Sender: FDA-Public Use
  Company Number: None

PATIENT
  Age: 68 Year
  Sex: Female
  Weight: 77.11 kg

DRUGS (9)
  1. VITAMIN D3 [Concomitant]
     Active Substance: CHOLECALCIFEROL
  2. MAGNESIUM [Concomitant]
     Active Substance: MAGNESIUM
  3. LEVOTHYROXINE [Concomitant]
     Active Substance: LEVOTHYROXINE
  4. LOSARAN-HCTZ [Concomitant]
  5. 1 A DAY MUTLIVITAMIN [Concomitant]
  6. FISH OIL [Concomitant]
     Active Substance: FISH OIL
  7. POTASSIUM [Concomitant]
     Active Substance: POTASSIUM
  8. NORVASC [Suspect]
     Active Substance: AMLODIPINE BESYLATE
     Indication: HYPERTENSION
     Route: 048
     Dates: start: 20110727, end: 201212
  9. TRAZODONE [Concomitant]
     Active Substance: TRAZODONE HYDROCHLORIDE

REACTIONS (10)
  - Hypoaesthesia [None]
  - Skin discolouration [None]
  - Paraesthesia [None]
  - Joint swelling [None]
  - Arthralgia [None]
  - Angiopathy [None]
  - Pain in extremity [None]
  - Ill-defined disorder [None]
  - Peripheral swelling [None]
  - Tenderness [None]

NARRATIVE: CASE EVENT DATE: 20110727
